FAERS Safety Report 14384440 (Version 1)
Quarter: 2018Q1

REPORT INFORMATION
  Report Type: Spontaneous
  Country: SG (occurrence: SG)
  Receive Date: 20180115
  Receipt Date: 20180115
  Transmission Date: 20180509
  Serious: Yes (Hospitalization)
  Sender: FDA-Public Use
  Company Number: SG-BAYER-2017-247736

PATIENT
  Sex: Male

DRUGS (1)
  1. AVELOX [Suspect]
     Active Substance: MOXIFLOXACIN HYDROCHLORIDE
     Indication: UPPER RESPIRATORY TRACT INFECTION
     Dosage: UNK
     Route: 048
     Dates: start: 201711

REACTIONS (8)
  - Hospitalisation [None]
  - Hypoaesthesia [Not Recovered/Not Resolved]
  - Erythema [None]
  - Loss of personal independence in daily activities [None]
  - Pain in extremity [None]
  - Asthenia [None]
  - Contusion [None]
  - Swelling [None]
